FAERS Safety Report 20173028 (Version 2)
Quarter: 2022Q1

REPORT INFORMATION
  Report Type: Report from Study
  Country: DE (occurrence: DE)
  Receive Date: 20211211
  Receipt Date: 20220119
  Transmission Date: 20220424
  Serious: Yes (Hospitalization, Other)
  Sender: FDA-Public Use
  Company Number: DE-TAKEDA-ALL1-2014-00339

PATIENT
  Age: 19 Year
  Sex: Male

DRUGS (8)
  1. IDURSULFASE [Suspect]
     Active Substance: IDURSULFASE
     Indication: Mucopolysaccharidosis II
     Dosage: 24 MG (0.61 MG/KG), 1X/WEEK
     Route: 041
     Dates: start: 20070410
  2. IDURSULFASE [Suspect]
     Active Substance: IDURSULFASE
     Dosage: 0.61 MILLIGRAM/KILOGRAM
     Route: 042
     Dates: start: 20070410
  3. IDURSULFASE [Suspect]
     Active Substance: IDURSULFASE
     Dosage: 0.61 MILLIGRAM/KILOGRAM
     Route: 042
     Dates: start: 20100527
  4. PIPAMPERONE HYDROCHLORIDE [Concomitant]
     Active Substance: PIPAMPERONE HYDROCHLORIDE
     Indication: Disturbance in social behaviour
     Dosage: 5 ML, 1X/DAY:QD
     Route: 048
  5. FUROSEMID                          /00032601/ [Concomitant]
     Indication: Cardiovascular disorder
     Dosage: 7.5 MG, 1X/DAY:QD
     Route: 048
  6. IPRATROPIUM [Concomitant]
     Active Substance: IPRATROPIUM
     Indication: Respiratory disorder
     Dosage: 10 GTT, AS REQ^D
     Route: 055
  7. ALBUTEROL [Concomitant]
     Active Substance: ALBUTEROL
     Indication: Respiratory disorder
     Dosage: 10 GTT, AS REQ^D
     Route: 055
  8. BUDESONIDE [Concomitant]
     Active Substance: BUDESONIDE
     Indication: Respiratory disorder
     Dosage: UNK, UNKNOWN
     Route: 065

REACTIONS (2)
  - Deafness [Not Recovered/Not Resolved]
  - Condition aggravated [Not Recovered/Not Resolved]

NARRATIVE: CASE EVENT DATE: 20070626
